FAERS Safety Report 4688785-0 (Version None)
Quarter: 2005Q2

REPORT INFORMATION
  Report Type: 
  Country: None (occurrence: None)
  Receive Date: 20050610
  Receipt Date: 20050610
  Transmission Date: 20051028
  Serious: Yes (Hospitalization)
  Sender: FDA-Public Use
  Company Number: None

PATIENT
  Sex: Male
  Weight: 104.7 kg

DRUGS (3)
  1. VANCOMYCIN [Suspect]
     Indication: BACTERAEMIA
     Dosage: 1000 MG IVPB DAILY
     Route: 042
  2. MEROPENEM [Concomitant]
  3. HEPARIN [Concomitant]

REACTIONS (2)
  - HAEMATOCHEZIA [None]
  - THROMBOCYTOPENIA [None]
